FAERS Safety Report 24056941 (Version 1)
Quarter: 2024Q3

REPORT INFORMATION
  Report Type: Spontaneous
  Country: CN (occurrence: CN)
  Receive Date: 20240706
  Receipt Date: 20240706
  Transmission Date: 20241017
  Serious: Yes (Hospitalization)
  Sender: ROCHE
  Company Number: CN-ROCHE-10000015079

PATIENT
  Age: 43 Year
  Sex: Male

DRUGS (5)
  1. ATEZOLIZUMAB [Suspect]
     Active Substance: ATEZOLIZUMAB
     Indication: Hepatocellular carcinoma
     Route: 065
     Dates: start: 20220718
  2. BEVACIZUMAB [Suspect]
     Active Substance: BEVACIZUMAB
     Indication: Hepatocellular carcinoma
     Route: 065
     Dates: start: 20220718
  3. OXALIPLATIN [Concomitant]
     Active Substance: OXALIPLATIN
     Indication: Hepatocellular carcinoma
  4. LIPIODOL [Concomitant]
     Active Substance: ETHIODIZED OIL
  5. pirarubicin mixed emulsion [Concomitant]

REACTIONS (3)
  - Haemoptysis [Unknown]
  - Abdominal pain [Unknown]
  - Pleural effusion [Unknown]

NARRATIVE: CASE EVENT DATE: 20240328
